FAERS Safety Report 13942439 (Version 2)
Quarter: 2017Q4

REPORT INFORMATION
  Report Type: Report from Study
  Country: US (occurrence: US)
  Receive Date: 20170907
  Receipt Date: 20171221
  Transmission Date: 20180320
  Serious: Yes (Other)
  Sender: FDA-Public Use
  Company Number: US-AMGEN-USASL2017133578

PATIENT
  Age: 72 Year
  Sex: Female

DRUGS (1)
  1. REPATHA [Suspect]
     Active Substance: EVOLOCUMAB
     Indication: HYPERCHOLESTEROLAEMIA
     Dosage: 140 MG, Q2WK
     Route: 065
     Dates: start: 2017

REACTIONS (6)
  - Myocardial infarction [Recovered/Resolved]
  - Cystitis [Unknown]
  - Limb operation [Unknown]
  - Cardiac operation [Unknown]
  - Thermal burn [Unknown]
  - Skin disorder [Unknown]

NARRATIVE: CASE EVENT DATE: 2017
